FAERS Safety Report 5901542-X (Version None)
Quarter: 2008Q3

REPORT INFORMATION
  Report Type: 
  Country: None (occurrence: None)
  Receive Date: 20080929
  Receipt Date: 20080923
  Transmission Date: 20090109
  Serious: Yes (Hospitalization)
  Sender: FDA-Public Use
  Company Number: US-ELI_LILLY_AND_COMPANY-US200809005644

PATIENT
  Age: 60 Year
  Sex: Male

DRUGS (3)
  1. HUMALOG [Suspect]
     Dates: start: 20080101
  2. HUMULIN R [Suspect]
     Dates: start: 19620101, end: 20080101
  3. HUMULIN N [Suspect]
     Dates: start: 19620101

REACTIONS (3)
  - BLOOD GLUCOSE INCREASED [None]
  - DYSARTHRIA [None]
  - VASCULAR GRAFT [None]
